FAERS Safety Report 10184566 (Version 3)
Quarter: 2014Q2

REPORT INFORMATION
  Report Type: Report from Study
  Country: DE (occurrence: DE)
  Receive Date: 20140521
  Receipt Date: 20140625
  Transmission Date: 20141212
  Serious: Yes (Death, Other)
  Sender: FDA-Public Use
  Company Number: DE-BEH-2014042522

PATIENT
  Age: 83 Year
  Sex: Female
  Weight: 62 kg

DRUGS (26)
  1. PRIVIGEN [Suspect]
     Dosage: INFUSION RATE: MIN. 0.3 ML/ MIN MAX. 4.8 ML /MIN
     Dates: start: 20131108, end: 20131108
  2. PRIVIGEN [Suspect]
     Dosage: INFUSION RATE: MIN. 0.3 ML/ MIN MAX. 4.8 ML /MIN
     Dates: start: 20131108, end: 20131108
  3. PRIVIGEN [Suspect]
     Indication: SECONDARY IMMUNODEFICIENCY
     Dosage: INFUSION RATE MIN. 0.3 ML/MIN MAX. 4.8 ML/MIN
     Dates: start: 20131129, end: 20131129
  4. PRIVIGEN [Suspect]
     Dosage: INFUSION RATE MIN. 0.3 ML/MIN MAX. 4.8 ML/MIN
     Dates: start: 20131129, end: 20131129
  5. PRIVIGEN [Suspect]
     Indication: B-CELL LYMPHOMA
     Dosage: INFUSION RATE MIN. 0.3 ML/MIN MAX. 4.8 ML/MIN
     Dates: start: 20131220, end: 20131220
  6. PRIVIGEN [Suspect]
     Dosage: INFUSION RATE MIN. 0.3 ML/MIN MAX. 4.8 ML/MIN
     Dates: start: 20131220, end: 20131220
  7. PRIVIGEN [Suspect]
     Dosage: INFUSION RATE MIN. 0.3 ML/MIN MAX. 4.8 ML/MIN
     Dates: start: 20140110, end: 20140110
  8. PRIVIGEN [Suspect]
     Dosage: INFUSION RATE MIN. 0.3 ML/MIN MAX. 4.8 ML/MIN
     Dates: start: 20140110, end: 20140110
  9. PRIVIGEN [Suspect]
     Dosage: INFUSION RATE MIN. 0.3 ML/MIN MAX. 4.8 ML/MIN
     Dates: start: 20140207, end: 20140207
  10. PRIVIGEN [Suspect]
     Dosage: INFUSION RATE MIN. 0.3 ML/MIN MAX. 4.8 ML/MIN
     Dates: start: 20140228, end: 20140228
  11. PARACETAMOL [Concomitant]
     Route: 048
     Dates: start: 20131108, end: 20131108
  12. PARACETAMOL [Concomitant]
     Route: 048
     Dates: start: 20131129, end: 20131129
  13. PARACETAMOL [Concomitant]
     Route: 048
     Dates: start: 20131220, end: 20131220
  14. PARACETAMOL [Concomitant]
     Route: 048
     Dates: start: 20140110, end: 20140110
  15. PARACETAMOL [Concomitant]
     Route: 048
     Dates: start: 20140207, end: 20140207
  16. PARACETAMOL [Concomitant]
     Indication: PREMEDICATION
     Route: 048
     Dates: start: 20140228, end: 20140228
  17. AMLODIPIN 10 [Concomitant]
  18. METOPROLOL 50 [Concomitant]
  19. VOTUM 40 [Concomitant]
  20. L-THYROXINE 150 [Concomitant]
  21. FURESIS 40 [Concomitant]
  22. ACC 600 [Concomitant]
  23. FENTANYL PFLASTER [Concomitant]
  24. PANTOZOL 40 [Concomitant]
  25. LAXANS [Concomitant]
     Dosage: 2 X 10 DROPS
  26. KALINOR BT [Concomitant]

REACTIONS (2)
  - Pneumonia [Recovering/Resolving]
  - Death [Fatal]
